FAERS Safety Report 5562890-9 (Version None)
Quarter: 2007Q4

REPORT INFORMATION
  Report Type: 
  Country: None (occurrence: None)
  Receive Date: 20071217
  Receipt Date: 20071203
  Transmission Date: 20080405
  Serious: Yes (Hospitalization)
  Sender: FDA-Public Use
  Company Number: FR-AMGEN-US220491

PATIENT
  Sex: Female
  Weight: 48 kg

DRUGS (7)
  1. ENBREL [Suspect]
     Indication: RHEUMATOID ARTHRITIS
     Route: 058
     Dates: start: 20040101, end: 20070101
  2. NOVORAPID [Concomitant]
     Dosage: UNKNOWN
     Route: 065
  3. ACTONEL [Concomitant]
     Dosage: UNKNOWN
     Route: 065
  4. RAMIPRIL [Concomitant]
     Dosage: UNKNOWN
     Route: 065
  5. QUESTRAN [Concomitant]
     Dosage: UNKNOWN
     Route: 065
  6. CORTANCYL [Concomitant]
     Route: 048
  7. LANTUS [Concomitant]
     Dosage: UNKNOWN
     Route: 065

REACTIONS (3)
  - ANIMAL BITE [None]
  - ARTHRITIS BACTERIAL [None]
  - CAPNOCYTOPHAGIA INFECTION [None]
